FAERS Safety Report 17406991 (Version 1)
Quarter: 2020Q1

REPORT INFORMATION
  Report Type: Spontaneous
  Country: US (occurrence: US)
  Receive Date: 20200212
  Receipt Date: 20200212
  Transmission Date: 20200409
  Serious: Yes (Hospitalization, Other)
  Sender: FDA-Public Use
  Company Number: US-GILEAD-2020-0450128

PATIENT
  Age: 56 Year
  Sex: Female

DRUGS (3)
  1. ATAZANAVIR. [Concomitant]
     Active Substance: ATAZANAVIR
  2. TRUVADA [Suspect]
     Active Substance: EMTRICITABINE\TENOFOVIR DISOPROXIL FUMARATE
     Indication: HIV INFECTION
     Dosage: UNK
     Route: 065
  3. RITONAVIR. [Concomitant]
     Active Substance: RITONAVIR

REACTIONS (4)
  - Femur fracture [Recovering/Resolving]
  - Fanconi syndrome acquired [Recovering/Resolving]
  - Fracture [Recovering/Resolving]
  - Hypophosphataemic osteomalacia [Recovering/Resolving]
